FAERS Safety Report 7929204-8 (Version None)
Quarter: 2011Q4

REPORT INFORMATION
  Report Type: 
  Country: None (occurrence: None)
  Receive Date: 20111120
  Receipt Date: 20111109
  Transmission Date: 20120403
  Serious: Yes (Life-Threatening, Hospitalization)
  Sender: FDA-Public Use
  Company Number: FR-BRISTOL-MYERS SQUIBB COMPANY-16095531

PATIENT

DRUGS (3)
  1. ATAZANAVIR [Suspect]
     Indication: ANTIRETROVIRAL THERAPY
  2. RALTEGRAVIR [Suspect]
     Indication: ANTIRETROVIRAL THERAPY
  3. DIDANOSINE [Suspect]
     Indication: ANTIRETROVIRAL THERAPY

REACTIONS (1)
  - ACUTE GENERALISED EXANTHEMATOUS PUSTULOSIS [None]
